FAERS Safety Report 5175266-3 (Version None)
Quarter: 2006Q4

REPORT INFORMATION
  Report Type: 
  Country: None (occurrence: None)
  Receive Date: 20061211
  Receipt Date: 20061211
  Transmission Date: 20070319
  Serious: Yes (Hospitalization)
  Sender: FDA-Public Use
  Company Number: None

PATIENT
  Age: 63 Year
  Sex: Female
  Weight: 57.3 kg

DRUGS (2)
  1. CETUXIMAB [Suspect]
     Indication: BREAST CANCER STAGE IV
     Dosage: 250MG/M2   WEEKLY   IV
     Route: 042
     Dates: start: 20060705
  2. CARBOPLATIN [Suspect]
     Indication: BREAST CANCER STAGE IV
     Dosage: AUC2   WEEKLY 3/4 WEEKS   IV
     Route: 042
     Dates: start: 20061031

REACTIONS (1)
  - CHEST PAIN [None]
